FAERS Safety Report 9292192 (Version 1)
Quarter: 2013Q2

REPORT INFORMATION
  Report Type: Spontaneous
  Country: BR (occurrence: BR)
  Receive Date: 20130516
  Receipt Date: 20130516
  Transmission Date: 20140414
  Serious: Yes (Other)
  Sender: FDA-Public Use
  Company Number: BR-JNJFOC-20130506656

PATIENT
  Age: 1 Month
  Sex: Female
  Weight: 1.1 kg

DRUGS (2)
  1. TOPIRAMATE [Suspect]
     Indication: CONVULSION
     Route: 048
  2. TOPIRAMATE [Suspect]
     Indication: CONVULSION
     Route: 048

REACTIONS (2)
  - Motor dysfunction [Unknown]
  - Off label use [Unknown]
